FAERS Safety Report 8877350 (Version 1)
Quarter: 2012Q4

REPORT INFORMATION
  Report Type: Spontaneous
  Country: DK (occurrence: None)
  Receive Date: 20121025
  Receipt Date: 20121025
  Transmission Date: 20130627
  Serious: Yes (Death, Hospitalization)
  Sender: FDA-Public Use
  Company Number: 2012MA012716

PATIENT
  Age: 87 Year
  Sex: Female

DRUGS (12)
  1. INDAPAMIDE [Suspect]
     Indication: BLOOD PRESSURE HIGH
     Route: 048
     Dates: start: 20120702, end: 20120719
  2. ATENOLOL [Concomitant]
  3. BENDROFLUMETHIAZIDE [Concomitant]
  4. AMIAS [Concomitant]
  5. SIMVASTATIN [Concomitant]
  6. LEVOTHYROXINE SODIUM [Concomitant]
  7. EVOREL CONTI [Concomitant]
  8. ACETYLSALICYLIC ACID [Concomitant]
  9. PARACETAMOL [Concomitant]
  10. NATECAL D3 [Concomitant]
  11. PROTELOS [Concomitant]
  12. HYDROCORTISONE [Concomitant]

REACTIONS (5)
  - Gastric ulcer haemorrhage [None]
  - Erythema multiforme [None]
  - Hypokalaemia [None]
  - Decreased appetite [None]
  - Stevens-Johnson syndrome [None]
